FAERS Safety Report 22525921 (Version 3)
Quarter: 2023Q4

REPORT INFORMATION
  Report Type: Spontaneous
  Country: US (occurrence: US)
  Receive Date: 20230606
  Receipt Date: 20231010
  Transmission Date: 20240109
  Serious: Yes (Other)
  Sender: FDA-Public Use
  Company Number: US-PFIZER INC-202300209451

PATIENT
  Age: 76 Year
  Sex: Female

DRUGS (3)
  1. IBRANCE [Suspect]
     Active Substance: PALBOCICLIB
     Dosage: 125 MG, CYCLIC (21 DAYS, 7 DAYS OFF)
     Route: 048
     Dates: start: 20230120
  2. IBRANCE [Suspect]
     Active Substance: PALBOCICLIB
     Dosage: 125 MG, CYCLIC (ONE TABLET DAILY 21/28 CYCLE)
     Route: 048
     Dates: start: 20230121
  3. IBRANCE [Suspect]
     Active Substance: PALBOCICLIB
     Dosage: 125 MG, CYCLIC ( DAILY X 21 DAYS ON, 7 DAYS OFF)
     Route: 048
     Dates: start: 20230121

REACTIONS (4)
  - Cytopenia [Not Recovered/Not Resolved]
  - Visual impairment [Unknown]
  - Lacrimation increased [Unknown]
  - Fatigue [Unknown]

NARRATIVE: CASE EVENT DATE: 20230525
